FAERS Safety Report 9924339 (Version 1)
Quarter: 2014Q1

REPORT INFORMATION
  Report Type: Spontaneous
  Country: FR (occurrence: FR)
  Receive Date: 20140226
  Receipt Date: 20140226
  Transmission Date: 20141002
  Serious: Yes (Other)
  Sender: FDA-Public Use
  Company Number: FR-ROCHE-1352508

PATIENT
  Age: 34 Year
  Sex: Female

DRUGS (6)
  1. MABTHERA [Suspect]
     Indication: PEMPHIGUS
     Route: 042
     Dates: start: 20130904, end: 20130918
  2. PREDNISONE [Concomitant]
     Route: 065
     Dates: start: 201303
  3. INEXIUM [Concomitant]
     Route: 065
     Dates: start: 201303
  4. BACTRIM FORTE [Concomitant]
     Route: 065
     Dates: start: 201312
  5. FOSAMAX [Concomitant]
     Route: 065
     Dates: start: 201303, end: 201309
  6. FOSAMAX [Concomitant]
     Route: 065
     Dates: start: 201312

REACTIONS (2)
  - Hypophosphataemia [Recovering/Resolving]
  - Renal tubular disorder [Recovering/Resolving]
